FAERS Safety Report 9045507 (Version 1)
Quarter: 2013Q1

REPORT INFORMATION
  Report Type: Spontaneous
  Country: PL (occurrence: PL)
  Receive Date: 20130131
  Receipt Date: 20130131
  Transmission Date: 20140127
  Serious: Yes (Hospitalization)
  Sender: FDA-Public Use
  Company Number: PHHY2013PL006749

PATIENT
  Age: 17 Year
  Sex: Female

DRUGS (5)
  1. CICLOSPORIN [Suspect]
     Indication: LIVER TRANSPLANT
     Dosage: 25-50 MG, UNK
  2. CICLOSPORIN [Suspect]
     Dosage: 25-50 MG, BID
  3. CICLOSPORIN [Suspect]
     Dosage: 50 MG, BID
  4. PREDNISOLONE [Suspect]
     Dosage: 25 MG, UNK
  5. CEFTRIAXONE [Concomitant]
     Indication: INFECTION PROPHYLAXIS

REACTIONS (4)
  - Cholestasis [Unknown]
  - Blood bilirubin increased [Unknown]
  - Pruritus [Unknown]
  - Maternal exposure during pregnancy [Unknown]
